FAERS Safety Report 12679829 (Version 1)
Quarter: 2016Q3

REPORT INFORMATION
  Report Type: Spontaneous
  Country: US (occurrence: None)
  Receive Date: 20160823
  Receipt Date: 20160823
  Transmission Date: 20161109
  Serious: Yes (Disabling)
  Sender: FDA-Public Use
  Company Number: None

PATIENT
  Age: 70 Year
  Sex: Female
  Weight: 61.24 kg

DRUGS (8)
  1. DYAZIDE [Concomitant]
     Active Substance: HYDROCHLOROTHIAZIDE\TRIAMTERENE
  2. HYOSCYAMINE SULFATE. [Concomitant]
     Active Substance: HYOSCYAMINE SULFATE
  3. VITAMINS [Concomitant]
     Active Substance: VITAMINS
  4. ASA [Concomitant]
     Active Substance: ASPIRIN
  5. MELOXICAM. [Suspect]
     Active Substance: MELOXICAM
     Indication: POSTOPERATIVE CARE
     Dates: start: 20120718, end: 201208
  6. DIOVAN [Concomitant]
     Active Substance: VALSARTAN
  7. LIPITOR [Concomitant]
     Active Substance: ATORVASTATIN CALCIUM
  8. MINERALS [Concomitant]
     Active Substance: MINERALS

REACTIONS (1)
  - Colitis microscopic [None]

NARRATIVE: CASE EVENT DATE: 201208
